FAERS Safety Report 25015092 (Version 1)
Quarter: 2025Q1

REPORT INFORMATION
  Report Type: Spontaneous
  Country: US (occurrence: US)
  Receive Date: 20250226
  Receipt Date: 20250226
  Transmission Date: 20250409
  Serious: No
  Sender: NOVARTIS
  Company Number: US-002147023-NVSC2025US033050

PATIENT
  Sex: Female

DRUGS (2)
  1. TAFINLAR [Suspect]
     Active Substance: DABRAFENIB MESYLATE
     Indication: Metastases to central nervous system
     Dosage: 150 MG, BID
     Route: 048
     Dates: start: 202501
  2. TAFINLAR [Suspect]
     Active Substance: DABRAFENIB MESYLATE
     Indication: Thyroid cancer

REACTIONS (5)
  - Gait disturbance [Unknown]
  - Decreased appetite [Unknown]
  - Asthenia [Unknown]
  - Pain in extremity [Unknown]
  - Fatigue [Unknown]
